FAERS Safety Report 14358645 (Version 1)
Quarter: 2018Q1

REPORT INFORMATION
  Report Type: Spontaneous
  Country: US (occurrence: US)
  Receive Date: 20180105
  Receipt Date: 20180105
  Transmission Date: 20180509
  Serious: No
  Sender: FDA-Public Use
  Company Number: US-SA-2017SA240775

PATIENT
  Age: 28 Year
  Sex: Male

DRUGS (3)
  1. DUPIXENT [Suspect]
     Active Substance: DUPILUMAB
     Indication: DERMATITIS ATOPIC
     Route: 058
     Dates: start: 20171121
  2. DUPIXENT [Suspect]
     Active Substance: DUPILUMAB
     Indication: DERMATITIS ATOPIC
     Route: 058
  3. DUPIXENT [Suspect]
     Active Substance: DUPILUMAB
     Indication: DERMATITIS ATOPIC
     Route: 058
     Dates: start: 20171010

REACTIONS (7)
  - Skin exfoliation [Unknown]
  - Erythema [Unknown]
  - Pain of skin [Unknown]
  - Blister [Unknown]
  - Rash [Unknown]
  - Skin fissures [Unknown]
  - Injection site rash [Unknown]

NARRATIVE: CASE EVENT DATE: 20171121
